FAERS Safety Report 21904323 (Version 1)
Quarter: 2023Q1

REPORT INFORMATION
  Report Type: Spontaneous
  Country: US (occurrence: None)
  Receive Date: 20230124
  Receipt Date: 20230124
  Transmission Date: 20230418
  Serious: Yes (Hospitalization)
  Sender: FDA-Public Use
  Company Number: None

PATIENT
  Age: 52 Year
  Sex: Female
  Weight: 65.5 kg

DRUGS (3)
  1. TAXOL [Suspect]
     Active Substance: PACLITAXEL
     Dates: end: 20230109
  2. PERTUZUMAB [Suspect]
     Active Substance: PERTUZUMAB
     Dates: end: 20230109
  3. HERCEPTIN [Suspect]
     Active Substance: TRASTUZUMAB

REACTIONS (4)
  - Infusion related reaction [None]
  - Drug hypersensitivity [None]
  - Angioedema [None]
  - Throat tightness [None]

NARRATIVE: CASE EVENT DATE: 20230109
